FAERS Safety Report 5776194-2 (Version None)
Quarter: 2008Q2

REPORT INFORMATION
  Report Type: 
  Country: None (occurrence: None)
  Receive Date: 20080613
  Receipt Date: 20080609
  Transmission Date: 20081010
  Serious: Yes (Death, Life-Threatening, Other)
  Sender: FDA-Public Use
  Company Number: 2007SP007296

PATIENT
  Age: 69 Year
  Sex: Female
  Weight: 59 kg

DRUGS (8)
  1. TEMODAL [Suspect]
     Indication: GLIOBLASTOMA MULTIFORME
     Dosage: 150 MG/M2;QD; PO
     Route: 048
     Dates: start: 20061012, end: 20061016
  2. TEMODAL [Suspect]
     Indication: GLIOBLASTOMA MULTIFORME
     Dosage: 150 MG/M2;QD; PO
     Route: 048
     Dates: start: 20061117, end: 20061121
  3. BAKTAR [Concomitant]
  4. DEPAKENE [Concomitant]
  5. BUP-4 [Concomitant]
  6. BETAMETHASONE [Concomitant]
  7. TAGAMET [Concomitant]
  8. ZYPREXA [Concomitant]

REACTIONS (13)
  - BONE MARROW FAILURE [None]
  - C-REACTIVE PROTEIN INCREASED [None]
  - CONDITION AGGRAVATED [None]
  - DEPRESSED LEVEL OF CONSCIOUSNESS [None]
  - GASTRIC ULCER [None]
  - HEPATIC FUNCTION ABNORMAL [None]
  - MELAENA [None]
  - NEOPLASM PROGRESSION [None]
  - PNEUMONIA [None]
  - PNEUMONIA ASPIRATION [None]
  - PULMONARY FIBROSIS [None]
  - PYREXIA [None]
  - SCLERODERMA [None]
